FAERS Safety Report 19424049 (Version 1)
Quarter: 2021Q2

REPORT INFORMATION
  Report Type: Spontaneous
  Country: CO (occurrence: CO)
  Receive Date: 20210616
  Receipt Date: 20210616
  Transmission Date: 20210717
  Serious: Yes (Hospitalization)
  Sender: FDA-Public Use
  Company Number: CO-PFIZER INC-2021654553

PATIENT
  Age: 72 Year
  Sex: Female

DRUGS (1)
  1. XELJANZ [Suspect]
     Active Substance: TOFACITINIB CITRATE
     Indication: RHEUMATOID ARTHRITIS
     Dosage: UNK
     Route: 048
     Dates: start: 202101

REACTIONS (5)
  - Blood potassium decreased [Unknown]
  - Malaise [Unknown]
  - Decreased appetite [Unknown]
  - Depressed mood [Unknown]
  - Dehydration [Unknown]

NARRATIVE: CASE EVENT DATE: 20210601
